FAERS Safety Report 4960503-8 (Version None)
Quarter: 2006Q1

REPORT INFORMATION
  Report Type: 
  Country: None (occurrence: None)
  Receive Date: 20060328
  Receipt Date: 20060320
  Transmission Date: 20060701
  Serious: Yes (Death)
  Sender: FDA-Public Use
  Company Number: 2006S1000054

PATIENT
  Age: 2 Day
  Sex: Female

DRUGS (10)
  1. INOMAX [Suspect]
     Indication: LUNG DISORDER
     Dosage: 5 PPM; CONT, INH
     Route: 055
     Dates: start: 20060318, end: 20060319
  2. INOMAX [Suspect]
     Indication: PROPHYLAXIS
     Dosage: 5 PPM; CONT, INH
     Route: 055
     Dates: start: 20060318, end: 20060319
  3. CEFOTAXIME SODIUM [Concomitant]
  4. AMPICILLIN [Concomitant]
  5. GENTAMICIN [Concomitant]
  6. AMPHOTERICIN B [Concomitant]
  7. SODIUM BICARBONATE IN PLASTIC CONTAINER [Concomitant]
  8. SUPRARENIN INJ [Concomitant]
  9. DEXAMETHASONE [Concomitant]
  10. BOVINE SURFACTANT [Concomitant]

REACTIONS (7)
  - BRADYCARDIA NEONATAL [None]
  - EMPHYSEMA [None]
  - INTRAVENTRICULAR HAEMORRHAGE NEONATAL [None]
  - NEONATAL DISORDER [None]
  - NEONATAL RESPIRATORY ACIDOSIS [None]
  - NEONATAL RESPIRATORY FAILURE [None]
  - RESPIRATORY ACIDOSIS [None]
